FAERS Safety Report 9493769 (Version 2)
Quarter: 2013Q3

REPORT INFORMATION
  Report Type: Report from Study
  Country: PE (occurrence: PE)
  Receive Date: 20130902
  Receipt Date: 20130910
  Transmission Date: 20140515
  Serious: Yes (Other)
  Sender: FDA-Public Use
  Company Number: PE-BRISTOL-MYERS SQUIBB COMPANY-19211994

PATIENT
  Age: 47 Year
  Sex: Male
  Weight: 52 kg

DRUGS (7)
  1. STOCRIN CAPS [Suspect]
     Indication: HIV INFECTION
     Dosage: 19-FEB-2013 / LAST DOSE: 15-AUG-2013: 178 DAYS
     Route: 048
     Dates: start: 20130219
  2. TENOFOVIR DF + EMTRICITABINE [Suspect]
     Indication: HIV INFECTION
     Dosage: 1DF:200/300:EMTRICITABINE+TENOFOVIR DISOPROXIL FUMARATE?19FEB2013 TO 15AUG2013:178DAYS;0831 CAPS
     Route: 048
     Dates: start: 20130219
  3. RIFAMPICIN + ISONIAZID + PYRAZINAMIDE + ETHAMBUTOL [Suspect]
     Indication: HIV INFECTION
     Dosage: 1DF:(RIFAMPIN1100+ISONIAZID300+PYRAZINAMIDE1600+ETHAMBUTOL600);UNITS NOS?TAB;19FEB13-15APR13:56DAYS
     Route: 048
     Dates: start: 20130219, end: 20130415
  4. RIFAMPIN [Suspect]
     Indication: HIV INFECTION
     Dosage: 1DF:300 UNITS NOS;CAPS?16APR13-LAST DOSE: 05AUG13:112 DAYS
     Route: 048
     Dates: start: 20130416
  5. ISONIAZID [Suspect]
     Indication: HIV INFECTION
     Dosage: 1DF:600 UNITS NOS;CAPS?16APR13-LAST DOSE: 05AUG13:112 DAYS
     Route: 048
     Dates: start: 20130416
  6. PYRIDOXINE [Concomitant]
     Dosage: 19FEB2013-05AUG2013
     Route: 048
     Dates: start: 20130219
  7. CO-TRIMOXAZOLE [Concomitant]
     Dosage: 1DF:800/160 UNITS NOS?21-FEB-2013-15-AUG-2013
     Route: 048
     Dates: start: 20130221

REACTIONS (1)
  - Hypophosphataemia [Not Recovered/Not Resolved]
